FAERS Safety Report 8133403-2 (Version None)
Quarter: 2012Q1

REPORT INFORMATION
  Report Type: 
  Country: None (occurrence: None)
  Receive Date: 20120213
  Receipt Date: 20120209
  Transmission Date: 20120608
  Serious: Yes (Death)
  Sender: FDA-Public Use
  Company Number: PHHY2012RU011745

PATIENT
  Age: 27 Year
  Sex: Female

DRUGS (2)
  1. CYCLOSPORINE [Suspect]
     Dosage: UNK
  2. MYFORTIC [Concomitant]
     Route: 048

REACTIONS (1)
  - SEPSIS [None]
